FAERS Safety Report 8838947 (Version 1)
Quarter: 2012Q4

REPORT INFORMATION
  Report Type: 
  Country: FI (occurrence: FI)
  Receive Date: 20121015
  Receipt Date: 20121015
  Transmission Date: 20130627
  Serious: Yes (Other)
  Sender: FDA-Public Use
  Company Number: FI-RANBAXY-2012R1-60842

PATIENT
  Age: 71 Year
  Sex: Male

DRUGS (5)
  1. DONEPEZIL [Suspect]
     Indication: DEMENTIA ALZHEIMER^S TYPE
     Dosage: 10mg
     Route: 065
  2. ROCURONIUM [Interacting]
     Indication: ANAESTHESIA
     Dosage: UNK
     Route: 042
  3. GLYCOPYRROLATE [Suspect]
     Indication: ANAESTHESIA
     Dosage: UNK
     Route: 042
  4. FENTANYL [Suspect]
     Indication: ANAESTHESIA
     Dosage: UNK
     Route: 042
  5. PROPOFOL [Suspect]
     Indication: ANAESTHESIA
     Dosage: UNK
     Route: 042

REACTIONS (2)
  - Drug interaction [Unknown]
  - Drug effect decreased [Unknown]
